FAERS Safety Report 19078170 (Version 1)
Quarter: 2021Q1

REPORT INFORMATION
  Report Type: Spontaneous
  Country: US (occurrence: US)
  Receive Date: 20210331
  Receipt Date: 20210331
  Transmission Date: 20210420
  Serious: Yes (Hospitalization)
  Sender: FDA-Public Use
  Company Number: None

PATIENT
  Sex: Male
  Weight: 81.1 kg

DRUGS (1)
  1. CYTARABINE. [Suspect]
     Active Substance: CYTARABINE

REACTIONS (6)
  - Tachycardia [None]
  - Diverticulitis [None]
  - Bacterial infection [None]
  - Chills [None]
  - Pyrexia [None]
  - Klebsiella infection [None]

NARRATIVE: CASE EVENT DATE: 20210313
